FAERS Safety Report 15880025 (Version 1)
Quarter: 2019Q1

REPORT INFORMATION
  Report Type: Spontaneous
  Country: US (occurrence: US)
  Receive Date: 20190128
  Receipt Date: 20190128
  Transmission Date: 20190417
  Serious: No
  Sender: FDA-Public Use
  Company Number: None

PATIENT
  Sex: Female

DRUGS (8)
  1. GADAVIST [Suspect]
     Active Substance: GADOBUTROL
  2. CYMBALTA [Concomitant]
     Active Substance: DULOXETINE HYDROCHLORIDE
  3. BUSPAR [Concomitant]
     Active Substance: BUSPIRONE HYDROCHLORIDE
  4. ALEVE [Concomitant]
     Active Substance: NAPROXEN SODIUM
  5. VITAMINS [Concomitant]
     Active Substance: VITAMINS
  6. CANNABIS [Concomitant]
     Active Substance: CANNABIS SATIVA SUBSP. INDICA TOP
  7. TIZANIDINE. [Concomitant]
     Active Substance: TIZANIDINE
  8. WELLBUTRIN [Concomitant]
     Active Substance: BUPROPION HYDROCHLORIDE

REACTIONS (11)
  - Vomiting [None]
  - Visual impairment [None]
  - Deafness [None]
  - Visual field defect [None]
  - Impaired work ability [None]
  - Muscle spasms [None]
  - Dizziness [None]
  - Photophobia [None]
  - Muscle twitching [None]
  - Cognitive disorder [None]
  - Headache [None]

NARRATIVE: CASE EVENT DATE: 20170421
